FAERS Safety Report 23618059 (Version 1)
Quarter: 2024Q1

REPORT INFORMATION
  Report Type: Other
  Country: CN (occurrence: CN)
  Receive Date: 20240311
  Receipt Date: 20240311
  Transmission Date: 20240409
  Serious: Yes (Other)
  Sender: FDA-Public Use
  Company Number: CN-ASTELLAS-2024US007264

PATIENT
  Age: 44 Year
  Sex: Female
  Weight: 52 kg

DRUGS (7)
  1. XOSPATA [Suspect]
     Active Substance: GILTERITINIB
     Indication: Acute myeloid leukaemia
     Route: 048
     Dates: start: 20231222, end: 20231228
  2. XOSPATA [Suspect]
     Active Substance: GILTERITINIB
     Indication: Pneumonitis
     Route: 048
     Dates: start: 2024
  3. VENETOCLAX [Concomitant]
     Active Substance: VENETOCLAX
     Indication: Acute myeloid leukaemia
     Route: 048
     Dates: start: 20231222, end: 20231228
  4. VENETOCLAX [Concomitant]
     Active Substance: VENETOCLAX
     Indication: Pneumonitis
  5. AZACITIDINE [Concomitant]
     Active Substance: AZACITIDINE
     Indication: Acute myeloid leukaemia
     Dosage: 100 MG, UNKNOWN FREQ. (D1-5)
     Route: 058
     Dates: start: 20231222, end: 20231227
  6. AZACITIDINE [Concomitant]
     Active Substance: AZACITIDINE
     Indication: Pneumonitis
     Dosage: 140 MG, UNKNOWN FREQ. (D6-7)
     Route: 058
     Dates: start: 20231228, end: 20231229
  7. VORICONAZOLE [Concomitant]
     Active Substance: VORICONAZOLE
     Indication: Product used for unknown indication
     Dosage: UNK UNK, UNKNOWN FREQ.
     Route: 065

REACTIONS (5)
  - Myelosuppression [Unknown]
  - Agranulocytosis [Unknown]
  - Full blood count decreased [Recovering/Resolving]
  - Pyrexia [Recovering/Resolving]
  - Off label use [Unknown]

NARRATIVE: CASE EVENT DATE: 20231222
